FAERS Safety Report 4339623-7 (Version None)
Quarter: 2004Q2

REPORT INFORMATION
  Report Type: 
  Country: None (occurrence: None)
  Receive Date: 20040415
  Receipt Date: 20030411
  Transmission Date: 20050107
  Serious: Yes (Hospitalization, Disabling, Other)
  Sender: FDA-Public Use
  Company Number: US-MERCK-0304USA01262

PATIENT
  Age: 78 Year
  Sex: Female
  Weight: 68 kg

DRUGS (7)
  1. ASPIRIN [Concomitant]
     Indication: PROPHYLAXIS
     Route: 065
  2. ASPIRIN [Concomitant]
     Route: 065
  3. LIPITOR [Concomitant]
     Route: 065
  4. ALLEGRA [Concomitant]
     Indication: PROPHYLAXIS
     Route: 065
  5. SYNTHROID [Concomitant]
     Route: 065
  6. VIOXX [Suspect]
     Indication: ARTHRALGIA
     Route: 048
     Dates: start: 20000320, end: 20010801
  7. VIOXX [Suspect]
     Route: 048
     Dates: start: 20000320, end: 20010801

REACTIONS (18)
  - ANGINA PECTORIS [None]
  - BURSITIS [None]
  - CHOLELITHIASIS [None]
  - COLONIC POLYP [None]
  - DIVERTICULUM [None]
  - GASTRIC ULCER [None]
  - GASTRITIS EROSIVE [None]
  - GRAFT THROMBOSIS [None]
  - HAEMORRHOIDS [None]
  - HYPERTENSION [None]
  - INNER EAR DISORDER [None]
  - OEDEMA PERIPHERAL [None]
  - OSTEOARTHRITIS [None]
  - PELVIC MASS [None]
  - PRESBYOESOPHAGUS [None]
  - ROTATOR CUFF SYNDROME [None]
  - SYNOVITIS [None]
  - UPPER GASTROINTESTINAL HAEMORRHAGE [None]
